FAERS Safety Report 9641966 (Version 3)
Quarter: 2013Q4

REPORT INFORMATION
  Report Type: Spontaneous
  Country: LV (occurrence: LV)
  Receive Date: 20131023
  Receipt Date: 20131220
  Transmission Date: 20140711
  Serious: Yes (Hospitalization)
  Sender: FDA-Public Use
  Company Number: LV-GE HEALTHCARE MEDICAL DIAGNOSTICS-OMPQ-E2B_00000038

PATIENT
  Age: 71 Year
  Sex: Female
  Weight: 59 kg

DRUGS (2)
  1. OMNIPAQUE [Suspect]
     Indication: PRODUCT USED FOR UNKNOWN INDICATION
     Route: 042
     Dates: start: 20131002, end: 20131002
  2. OMNIPAQUE [Suspect]
     Indication: DIAGNOSTIC PROCEDURE

REACTIONS (8)
  - Decreased appetite [Recovered/Resolved]
  - Myalgia [Recovered/Resolved]
  - Abdominal pain upper [Recovered/Resolved]
  - Headache [Recovered/Resolved]
  - Nausea [Recovered/Resolved]
  - Asthenia [Recovered/Resolved]
  - Vomiting [Recovered/Resolved]
  - Diarrhoea [Recovered/Resolved]
